FAERS Safety Report 8889805 (Version 1)
Quarter: 2012Q4

REPORT INFORMATION
  Report Type: 
  Country: US (occurrence: US)
  Receive Date: 20121107
  Receipt Date: 20121107
  Transmission Date: 20130627
  Serious: Yes (Other)
  Sender: FDA-Public Use
  Company Number: US-SANOFI-AVENTIS-2012SA080687

PATIENT
  Age: 27 Month
  Sex: Female

DRUGS (1)
  1. ALLEGRA [Suspect]
     Indication: DRUG USE FOR UNKNOWN INDICATION
     Route: 048
     Dates: start: 20121026, end: 20121028

REACTIONS (2)
  - Urinary retention [Unknown]
  - Vulvovaginal dryness [Unknown]
